FAERS Safety Report 19398530 (Version 1)
Quarter: 2021Q2

REPORT INFORMATION
  Report Type: Spontaneous
  Country: US (occurrence: US)
  Receive Date: 20210609
  Receipt Date: 20210609
  Transmission Date: 20210717
  Serious: Yes (Other)
  Sender: FDA-Public Use
  Company Number: None

PATIENT
  Age: 36 Year
  Sex: Female

DRUGS (12)
  1. BUPROPION 150 XL [Concomitant]
     Dates: start: 20200630
  2. SEROQUEL 200 [Concomitant]
     Dates: start: 20200110
  3. BUPRENORPHINE?NALOXONE SL TAB [Suspect]
     Active Substance: BUPRENORPHINE\NALOXONE
     Indication: DRUG USE DISORDER
     Route: 060
     Dates: start: 20210517, end: 20210609
  4. FLUTICASONE?SALMETEROL [Concomitant]
     Dates: start: 20190110
  5. PANTOPRAZOLE 20 [Concomitant]
     Active Substance: PANTOPRAZOLE SODIUM
     Dates: start: 20200701
  6. REQUIP 0.5 [Concomitant]
     Dates: start: 20210225
  7. IPRATROPIUM INHALER [Concomitant]
     Active Substance: IPRATROPIUM BROMIDE
     Dates: start: 20210110
  8. METFORMIN 500 [Concomitant]
     Active Substance: METFORMIN HYDROCHLORIDE
     Dates: start: 20200701
  9. PREGABALIN 150 TID [Concomitant]
     Dates: start: 20201201
  10. DULOXETINE 60 MG [Concomitant]
     Active Substance: DULOXETINE
     Dates: start: 20190110
  11. HYDROCODONE [Concomitant]
     Active Substance: HYDROCODONE
     Dates: start: 20170110, end: 20210510
  12. PRAZOSIN 2 MG. [Concomitant]
     Dates: start: 20200701

REACTIONS (4)
  - Mucosal inflammation [None]
  - Dehydration [None]
  - Nausea [None]
  - Vomiting [None]

NARRATIVE: CASE EVENT DATE: 20210602
